FAERS Safety Report 5627734-5 (Version None)
Quarter: 2008Q1

REPORT INFORMATION
  Report Type: 
  Country: None (occurrence: None)
  Receive Date: 20080215
  Receipt Date: 20080211
  Transmission Date: 20080703
  Serious: Yes (Death, Hospitalization)
  Sender: FDA-Public Use
  Company Number: US-AVENTIS-200615076US

PATIENT
  Sex: Male

DRUGS (13)
  1. KETEK [Suspect]
     Indication: BRONCHITIS
     Route: 048
     Dates: start: 20060528, end: 20060530
  2. KETEK [Suspect]
     Indication: CHRONIC OBSTRUCTIVE PULMONARY DISEASE
     Route: 048
     Dates: start: 20060528, end: 20060530
  3. LISINOPRIL [Concomitant]
     Indication: HYPERTENSION
     Route: 048
     Dates: start: 20030101
  4. LASIX [Concomitant]
     Indication: HYPERTENSION
     Route: 048
     Dates: start: 20030101
  5. SYNTHROID [Concomitant]
     Indication: HYPOTHYROIDISM
     Route: 048
     Dates: start: 20030101
  6. ASPIRIN [Concomitant]
     Indication: CORONARY ARTERY DISEASE
     Route: 048
     Dates: start: 20030101
  7. LANOXIN [Concomitant]
  8. FLOMAX [Concomitant]
  9. POTASSIUM CHLORIDE [Concomitant]
     Indication: HYPERTENSION
     Route: 048
     Dates: start: 20030101
  10. NEXIUM [Concomitant]
     Dosage: DOSE: UNK
     Route: 048
     Dates: start: 20030101
  11. ADVAIR DISKUS 100/50 [Concomitant]
  12. FERROUS SULFATE TAB [Concomitant]
     Dosage: DOSE: UNK
  13. NIACIN [Concomitant]

REACTIONS (32)
  - ACIDOSIS [None]
  - ACUTE RESPIRATORY DISTRESS SYNDROME [None]
  - ALANINE AMINOTRANSFERASE INCREASED [None]
  - ASPARTATE AMINOTRANSFERASE INCREASED [None]
  - AZOTAEMIA [None]
  - BLOOD ALKALINE PHOSPHATASE INCREASED [None]
  - BLOOD BILIRUBIN INCREASED [None]
  - BLOOD CREATININE INCREASED [None]
  - BRONCHITIS [None]
  - CARDIAC ARREST [None]
  - CHILLS [None]
  - COUGH [None]
  - ECHOCARDIOGRAM ABNORMAL [None]
  - FIBRINOLYSIS INCREASED [None]
  - HEART INJURY [None]
  - HEPATIC FAILURE [None]
  - HEPATITIS TOXIC [None]
  - HYPERHIDROSIS [None]
  - HYPOTENSION [None]
  - INTRACARDIAC THROMBUS [None]
  - OXYGEN SATURATION DECREASED [None]
  - PROTHROMBIN TIME PROLONGED [None]
  - PYREXIA [None]
  - RENAL FAILURE [None]
  - RESPIRATORY DISTRESS [None]
  - RESPIRATORY FAILURE [None]
  - SEPSIS [None]
  - SUPRAVENTRICULAR TACHYCARDIA [None]
  - TACHYCARDIA [None]
  - THROMBOCYTOPENIA [None]
  - TROPONIN INCREASED [None]
  - VENTRICULAR TACHYCARDIA [None]
